FAERS Safety Report 23201349 (Version 2)
Quarter: 2024Q1

REPORT INFORMATION
  Report Type: Other
  Country: US (occurrence: US)
  Receive Date: 20231118
  Receipt Date: 20240315
  Transmission Date: 20240409
  Serious: No
  Sender: FDA-Public Use
  Company Number: US-TRAVERE-2023TVT00569

PATIENT
  Age: 48 Year
  Sex: Male

DRUGS (3)
  1. FILSPARI [Suspect]
     Active Substance: SPARSENTAN
     Indication: IgA nephropathy
     Route: 048
     Dates: start: 20230929
  2. FILSPARI [Suspect]
     Active Substance: SPARSENTAN
     Indication: Haematuria
     Route: 048
  3. LISINOPRIL [Suspect]
     Active Substance: LISINOPRIL

REACTIONS (2)
  - Dizziness [Unknown]
  - Blood potassium increased [Unknown]

NARRATIVE: CASE EVENT DATE: 20230929
